FAERS Safety Report 15089634 (Version 8)
Quarter: 2019Q4

REPORT INFORMATION
  Report Type: Report from Study
  Country: IT (occurrence: IT)
  Receive Date: 20180629
  Receipt Date: 20191115
  Transmission Date: 20200122
  Serious: Yes (Other)
  Sender: FDA-Public Use
  Company Number: PHHY2018IT028970

PATIENT
  Age: 66 Year
  Sex: Male

DRUGS (8)
  1. DIDROGYL [Concomitant]
     Active Substance: CALCIFEDIOL
     Dosage: 20 DRP, UNK
     Route: 048
     Dates: start: 20181026
  2. SIGNIFOR LAR [Suspect]
     Active Substance: PASIREOTIDE
     Indication: ACROMEGALY
     Dosage: 40 MG, QD
     Route: 065
     Dates: start: 20170808
  3. TAREG [Concomitant]
     Active Substance: VALSARTAN
     Indication: HYPERTENSION
     Dosage: 160 MG, UNK
     Route: 048
     Dates: start: 2004
  4. BISOPROLOLO [Concomitant]
     Active Substance: BISOPROLOL FUMARATE
     Indication: HYPERTENSION
     Dosage: 10 MG, UNK
     Route: 048
     Dates: start: 2010, end: 20180306
  5. CARDURA [Concomitant]
     Active Substance: DOXAZOSIN MESYLATE
     Indication: HYPERTENSION
     Dosage: 2 MG, UNK
     Route: 048
     Dates: start: 2010
  6. DIDROGYL [Concomitant]
     Active Substance: CALCIFEDIOL
     Dosage: 30 DRP, UNK
     Route: 048
  7. EUTIROX [Concomitant]
     Active Substance: LEVOTHYROXINE SODIUM
     Indication: PRIMARY HYPOTHYROIDISM
     Dosage: 50 UG, UNK
     Route: 048
     Dates: start: 20121126, end: 20180619
  8. DIDROGYL [Concomitant]
     Active Substance: CALCIFEDIOL
     Indication: VITAMIN D DEFICIENCY
     Dosage: 25 DRP, UNK
     Route: 048
     Dates: start: 20160916, end: 20180619

REACTIONS (9)
  - Hyperuricaemia [Not Recovered/Not Resolved]
  - Atrioventricular block [Recovered/Resolved]
  - Diabetes mellitus [Not Recovered/Not Resolved]
  - Hyperglycaemia [Unknown]
  - Hypertriglyceridaemia [Recovered/Resolved]
  - Rash [Recovered/Resolved]
  - Hypercholesterolaemia [Recovered/Resolved]
  - Food allergy [Not Recovered/Not Resolved]
  - Benign prostatic hyperplasia [Not Recovered/Not Resolved]

NARRATIVE: CASE EVENT DATE: 20170911
